FAERS Safety Report 24843068 (Version 3)
Quarter: 2025Q1

REPORT INFORMATION
  Report Type: Spontaneous
  Country: US (occurrence: US)
  Receive Date: 20250115
  Receipt Date: 20250326
  Transmission Date: 20250409
  Serious: No
  Sender: LUPIN
  Company Number: US-LUPIN PHARMACEUTICALS INC.-2024-13214

PATIENT
  Age: 80 Year
  Weight: 70.295 kg

DRUGS (1)
  1. RAMIPRIL [Suspect]
     Active Substance: RAMIPRIL
     Indication: Blood pressure abnormal
     Dosage: 10 MILLIGRAM, QD, ONCE CAPSULE A DAY

REACTIONS (2)
  - Drug ineffective [Unknown]
  - Recalled product administered [Unknown]
